FAERS Safety Report 9915640 (Version 1)
Quarter: 2014Q1

REPORT INFORMATION
  Report Type: Spontaneous
  Country: US (occurrence: None)
  Receive Date: 20140219
  Receipt Date: 20140219
  Transmission Date: 20141002
  Serious: Yes (Hospitalization, Disabling)
  Sender: FDA-Public Use
  Company Number: None

PATIENT
  Age: 53 Year
  Sex: Male
  Weight: 86.18 kg

DRUGS (2)
  1. ZYPREXA [Suspect]
     Indication: PRODUCT USED FOR UNKNOWN INDICATION
     Route: 048
     Dates: start: 20131230
  2. ULTRAM [Concomitant]

REACTIONS (8)
  - Dizziness [None]
  - Amnesia [None]
  - Tinnitus [None]
  - Depression [None]
  - Asthenia [None]
  - Fatigue [None]
  - Bruxism [None]
  - Unevaluable event [None]
